FAERS Safety Report 5636381-0 (Version None)
Quarter: 2008Q1

REPORT INFORMATION
  Report Type: 
  Country: None (occurrence: None)
  Receive Date: 20080225
  Receipt Date: 20071121
  Transmission Date: 20080703
  Serious: No
  Sender: FDA-Public Use
  Company Number: A0693627A

PATIENT
  Age: 27 Year
  Sex: Female
  Weight: 68.2 kg

DRUGS (2)
  1. VERAMYST [Suspect]
     Indication: SEASONAL ALLERGY
     Dosage: 2SPR PER DAY
     Route: 045
     Dates: start: 20070801
  2. SINGULAIR [Suspect]
     Indication: SEASONAL ALLERGY
     Dosage: 1TAB PER DAY
     Route: 048
     Dates: start: 20070801

REACTIONS (2)
  - EPISTAXIS [None]
  - SECRETION DISCHARGE [None]
